FAERS Safety Report 10249674 (Version 1)
Quarter: 2014Q2

REPORT INFORMATION
  Report Type: Spontaneous
  Country: US (occurrence: None)
  Receive Date: 20140619
  Receipt Date: 20140619
  Transmission Date: 20141212
  Serious: Yes (Other)
  Sender: FDA-Public Use
  Company Number: None

PATIENT
  Age: 19 Year
  Sex: Female
  Weight: 72.58 kg

DRUGS (2)
  1. INVEGA SUSTENNA [Suspect]
     Indication: ANTIPSYCHOTIC DRUG LEVEL THERAPEUTIC
     Dosage: 156 MG/ML Q 4 WEEKS INTRAMUSCULAR
     Route: 030
     Dates: start: 20140519, end: 20140519
  2. FUOXETINE [Concomitant]

REACTIONS (1)
  - Injection site cellulitis [None]
